FAERS Safety Report 13034618 (Version 5)
Quarter: 2017Q1

REPORT INFORMATION
  Report Type: Spontaneous
  Country: JP (occurrence: JP)
  Receive Date: 20161216
  Receipt Date: 20170123
  Transmission Date: 20170428
  Serious: Yes (Other)
  Sender: FDA-Public Use
  Company Number: PHJP2016JP036540

PATIENT
  Age: 75 Year
  Sex: Female

DRUGS (3)
  1. RECALBON [Concomitant]
     Active Substance: MINODRONIC ACID
     Indication: FRACTURE
     Dosage: 50 MG, 4W
     Route: 048
     Dates: start: 201310
  2. ZOMETA [Suspect]
     Active Substance: ZOLEDRONIC ACID
     Indication: METASTASES TO BONE
     Dosage: 4 MG, 4W
     Route: 065
     Dates: start: 201501, end: 201508
  3. RANMARK [Suspect]
     Active Substance: DENOSUMAB
     Indication: PRODUCT USED FOR UNKNOWN INDICATION
     Dosage: 120 MG, 4W
     Route: 065
     Dates: start: 201601, end: 201604

REACTIONS (10)
  - Exposed bone in jaw [Recovering/Resolving]
  - Swelling [Unknown]
  - Erythema [Unknown]
  - Hypoaesthesia [Recovering/Resolving]
  - Pain [Unknown]
  - Necrosis [Recovering/Resolving]
  - Trismus [Unknown]
  - Swelling [Recovering/Resolving]
  - Osteonecrosis of jaw [Recovering/Resolving]
  - Purulence [Unknown]

NARRATIVE: CASE EVENT DATE: 20150421
